FAERS Safety Report 4873291-0 (Version None)
Quarter: 2005Q4

REPORT INFORMATION
  Report Type: 
  Country: None (occurrence: None)
  Receive Date: 20051229
  Receipt Date: 20051214
  Transmission Date: 20060501
  Serious: Yes (Other)
  Sender: FDA-Public Use
  Company Number: 2005BH003613

PATIENT
  Age: 10 Year
  Sex: Male

DRUGS (1)
  1. FEIBA VH IMMUNO [Suspect]
     Indication: HAEMORRHAGE
     Dates: start: 20051201, end: 20051201

REACTIONS (2)
  - HYPERSENSITIVITY [None]
  - THROAT TIGHTNESS [None]
